FAERS Safety Report 12805688 (Version 2)
Quarter: 2016Q4

REPORT INFORMATION
  Report Type: Report from Study
  Country: DE (occurrence: DE)
  Receive Date: 20161004
  Receipt Date: 20161006
  Transmission Date: 20170207
  Serious: Yes (Hospitalization)
  Sender: FDA-Public Use
  Company Number: DE-ASTRAZENECA-2016SF02717

PATIENT
  Age: 57 Year
  Sex: Female

DRUGS (3)
  1. CANDECOR [Concomitant]
     Indication: HYPERTENSION
  2. AZD2281 [Suspect]
     Active Substance: OLAPARIB
     Indication: OVARIAN CANCER
     Route: 048
     Dates: start: 20150219, end: 20160913
  3. AVASTIN [Suspect]
     Active Substance: BEVACIZUMAB
     Indication: OVARIAN CANCER
     Dosage: 15 MG/KG, D1, Q3W, FOR A TOTAL DURATION OF 15 MONTHS / 22 CYCLES (INCLUDING COMBINATION WITH PLA...
     Route: 042
     Dates: start: 20160218, end: 20160916

REACTIONS (1)
  - Gastric perforation [Not Recovered/Not Resolved]

NARRATIVE: CASE EVENT DATE: 20160913
